FAERS Safety Report 16079049 (Version 2)
Quarter: 2019Q2

REPORT INFORMATION
  Report Type: Spontaneous
  Country: US (occurrence: US)
  Receive Date: 20190315
  Receipt Date: 20190416
  Transmission Date: 20190711
  Serious: No
  Sender: FDA-Public Use
  Company Number: US-ASTRAZENECA-2019SE28152

PATIENT
  Age: 15821 Day
  Sex: Female
  Weight: 173.3 kg

DRUGS (2)
  1. BYDUREON [Suspect]
     Active Substance: EXENATIDE
  2. BYDUREON BCISE [Suspect]
     Active Substance: EXENATIDE
     Indication: TYPE 2 DIABETES MELLITUS
     Route: 065
     Dates: start: 20190123, end: 20190207

REACTIONS (10)
  - Memory impairment [Not Recovered/Not Resolved]
  - Incorrect dose administered by device [Unknown]
  - Circumstance or information capable of leading to medication error [Unknown]
  - Device malfunction [Unknown]
  - Injection site haemorrhage [Recovered/Resolved]
  - Injection site indentation [Unknown]
  - Device issue [Unknown]
  - Product dose omission [Unknown]
  - Product label issue [Unknown]
  - Injection site extravasation [Unknown]

NARRATIVE: CASE EVENT DATE: 20190213
